FAERS Safety Report 18842810 (Version 1)
Quarter: 2021Q1

REPORT INFORMATION
  Report Type: Spontaneous
  Country: FR (occurrence: FR)
  Receive Date: 20210203
  Receipt Date: 20210203
  Transmission Date: 20210419
  Serious: Yes (Hospitalization)
  Sender: FDA-Public Use
  Company Number: FR-TEVA-2021-FR-1875194

PATIENT
  Age: 14 Year
  Sex: Female
  Weight: 82 kg

DRUGS (2)
  1. DIAZEPAM TEVA 5 MG, COMPRIME [Suspect]
     Active Substance: DIAZEPAM
     Indication: SUICIDE ATTEMPT
     Dosage: 28 DF
     Route: 048
     Dates: start: 20200428, end: 20200428
  2. DAFALGAN [Suspect]
     Active Substance: ACETAMINOPHEN
     Indication: SUICIDE ATTEMPT
     Dosage: 8 DF
     Route: 048
     Dates: start: 20200428, end: 20200428

REACTIONS (1)
  - Bradypnoea [Not Recovered/Not Resolved]

NARRATIVE: CASE EVENT DATE: 20200428
